FAERS Safety Report 12779354 (Version 1)
Quarter: 2016Q3

REPORT INFORMATION
  Report Type: Spontaneous
  Country: US (occurrence: US)
  Receive Date: 20160922
  Receipt Date: 20160922
  Transmission Date: 20161109
  Serious: Yes (Hospitalization)
  Sender: FDA-Public Use
  Company Number: None

PATIENT
  Age: 62 Year
  Sex: Male
  Weight: 64.6 kg

DRUGS (2)
  1. FUROSEMIDE. [Suspect]
     Active Substance: FUROSEMIDE
     Indication: HYPERTENSION
     Route: 048
     Dates: start: 20070605, end: 20111215
  2. FUROSEMIDE. [Suspect]
     Active Substance: FUROSEMIDE
     Indication: CARDIAC FAILURE CONGESTIVE
     Route: 048
     Dates: start: 20070605, end: 20111215

REACTIONS (9)
  - Dermatitis exfoliative [None]
  - Pneumonia [None]
  - Clostridium difficile infection [None]
  - Staphylococcal infection [None]
  - Dysphagia [None]
  - Oesophagitis [None]
  - Sepsis [None]
  - Mental status changes [None]
  - Acute kidney injury [None]

NARRATIVE: CASE EVENT DATE: 20111206
